FAERS Safety Report 6822614-1 (Version None)
Quarter: 2010Q3

REPORT INFORMATION
  Report Type: 
  Country: None (occurrence: None)
  Receive Date: 20100708
  Receipt Date: 20100706
  Transmission Date: 20110219
  Serious: Yes (Hospitalization)
  Sender: FDA-Public Use
  Company Number: GB-AMGEN-KDC413615

PATIENT
  Sex: Female

DRUGS (5)
  1. DENOSUMAB [Suspect]
     Indication: OSTEOPOROSIS POSTMENOPAUSAL
     Route: 058
     Dates: start: 20080430, end: 20091027
  2. SULPHASALAZINE [Suspect]
  3. PREDNISOLONE [Suspect]
  4. SIMVASTATIN [Concomitant]
     Route: 048
  5. CALCIUM/VITAMIN D [Concomitant]

REACTIONS (1)
  - PANCYTOPENIA [None]
